FAERS Safety Report 7498818-4 (Version None)
Quarter: 2011Q2

REPORT INFORMATION
  Report Type: 
  Country: None (occurrence: None)
  Receive Date: 20110516
  Receipt Date: 20110509
  Transmission Date: 20111010
  Serious: Yes (Disabling, Other)
  Sender: FDA-Public Use
  Company Number: TRP_07730_2011

PATIENT
  Age: 64 Year
  Sex: Male

DRUGS (1)
  1. INFERGEN [Suspect]
     Indication: PRODUCT USED FOR UNKNOWN INDICATION
     Dosage: (DF)

REACTIONS (2)
  - JAUNDICE [None]
  - OVERDOSE [None]
